FAERS Safety Report 5734201-7 (Version None)
Quarter: 2008Q2

REPORT INFORMATION
  Report Type: 
  Country: None (occurrence: None)
  Receive Date: 20080510
  Receipt Date: 20080430
  Transmission Date: 20081010
  Serious: Yes (Hospitalization, Other)
  Sender: FDA-Public Use
  Company Number: PHHO2007US20209

PATIENT
  Age: 70 Year
  Sex: Female
  Weight: 88.6 kg

DRUGS (7)
  1. GLEEVEC [Suspect]
     Indication: SARCOMA
     Dosage: 400 MG, UNK
     Route: 048
     Dates: start: 20071119, end: 20071203
  2. TAXOTERE [Suspect]
     Indication: SARCOMA
     Dosage: 59 MG, UNK
     Route: 042
     Dates: end: 20071217
  3. GEMZAR [Suspect]
     Indication: SARCOMA
     Dosage: 1170MG
     Route: 042
     Dates: end: 20071217
  4. FENTANYL-100 [Concomitant]
     Dosage: 100 UG, UNK
     Route: 062
  5. LOVENOX [Concomitant]
     Dosage: 100 MG, QD
  6. OXYCODONE HCL [Concomitant]
     Dosage: 5 MG, PRN
     Route: 048
  7. NITROGLYCERIN [Concomitant]

REACTIONS (8)
  - ANGINA PECTORIS [None]
  - ASPIRATION PLEURAL CAVITY [None]
  - ASTHENIA [None]
  - ATELECTASIS [None]
  - MEDIASTINAL MASS [None]
  - NEUTROPENIA [None]
  - PLATELET COUNT DECREASED [None]
  - PLEURAL EFFUSION [None]
